FAERS Safety Report 9413006 (Version 2)
Quarter: 2013Q4

REPORT INFORMATION
  Report Type: Spontaneous
  Country: US (occurrence: US)
  Receive Date: 20130722
  Receipt Date: 20131029
  Transmission Date: 20140711
  Serious: No
  Sender: FDA-Public Use
  Company Number: US-B.I. PHARMACEUTICALS,INC./RIDGEFIELD-2013-BI-21232BP

PATIENT
  Age: 78 Year
  Sex: Female

DRUGS (5)
  1. PRADAXA [Suspect]
     Indication: CEREBROVASCULAR ACCIDENT PROPHYLAXIS
     Dosage: 300 MG
     Route: 048
     Dates: start: 201303
  2. PRADAXA [Suspect]
     Indication: ATRIAL FIBRILLATION
  3. COQ-10 [Concomitant]
     Indication: ROUTINE HEALTH MAINTENANCE
     Dosage: (CAPSULE)
     Route: 048
     Dates: start: 2012
  4. VITAMIN D [Concomitant]
     Indication: ROUTINE HEALTH MAINTENANCE
     Dosage: (CAPSULE)
     Route: 048
     Dates: start: 2012
  5. TYLENOL [Concomitant]
     Indication: SCIATICA
     Dosage: (CAPSULE)
     Route: 048
     Dates: start: 2012

REACTIONS (2)
  - Oropharyngeal pain [Not Recovered/Not Resolved]
  - Constipation [Not Recovered/Not Resolved]
